FAERS Safety Report 5881484-9 (Version None)
Quarter: 2008Q3

REPORT INFORMATION
  Report Type: 
  Country: None (occurrence: None)
  Receive Date: 20080910
  Receipt Date: 20080826
  Transmission Date: 20090109
  Serious: Yes (Death)
  Sender: FDA-Public Use
  Company Number: 94808

PATIENT
  Age: 38 Year
  Sex: Male

DRUGS (2)
  1. ACETAMINOPHEN [Suspect]
     Indication: OVERDOSE
     Dosage: 10G
  2. IBUPROFEN [Suspect]
     Indication: OVERDOSE

REACTIONS (3)
  - OVERDOSE [None]
  - PROTHROMBIN TIME PROLONGED [None]
  - SEPSIS [None]
